FAERS Safety Report 17675518 (Version 2)
Quarter: 2020Q2

REPORT INFORMATION
  Report Type: Spontaneous
  Country: US (occurrence: US)
  Receive Date: 20200416
  Receipt Date: 20200424
  Transmission Date: 20200714
  Serious: No
  Sender: FDA-Public Use
  Company Number: US-SUNOVION-2020SUN001174

PATIENT
  Sex: Female

DRUGS (3)
  1. THYROID [Concomitant]
     Active Substance: LEVOTHYROXINE\LIOTHYRONINE
     Dosage: EVERY MORNING
  2. LATUDA [Suspect]
     Active Substance: LURASIDONE HYDROCHLORIDE
     Indication: BIPOLAR I DISORDER
     Dosage: 20 MG, QD
     Route: 048
     Dates: end: 202004
  3. PROZAC [Concomitant]
     Active Substance: FLUOXETINE HYDROCHLORIDE
     Dosage: EVERY MORNING

REACTIONS (9)
  - Hypertension [Unknown]
  - Therapy cessation [Unknown]
  - Stress [Unknown]
  - Seasonal allergy [Unknown]
  - Weight increased [Unknown]
  - Muscle twitching [Unknown]
  - Initial insomnia [Unknown]
  - Cough [Unknown]
  - Sinus congestion [Unknown]

NARRATIVE: CASE EVENT DATE: 20200410
